FAERS Safety Report 10210932 (Version 1)
Quarter: 2014Q2

REPORT INFORMATION
  Report Type: Spontaneous
  Country: BR (occurrence: BR)
  Receive Date: 20140602
  Receipt Date: 20140602
  Transmission Date: 20141212
  Serious: Yes (Hospitalization)
  Sender: FDA-Public Use
  Company Number: BR-ROCHE-1407466

PATIENT
  Age: 90 Year
  Sex: Female
  Weight: 90 kg

DRUGS (13)
  1. BONVIVA [Suspect]
     Indication: OSTEOPOROSIS
     Route: 065
     Dates: start: 201210
  2. BONVIVA [Suspect]
     Indication: OSTEOPENIA
  3. PROTOS (BRAZIL) [Suspect]
     Indication: OSTEOPOROSIS
     Route: 065
  4. PROTOS (BRAZIL) [Suspect]
     Indication: OSTEOPENIA
  5. DEPURA [Concomitant]
     Indication: OSTEOPOROSIS
     Route: 065
  6. LIPTOR [Concomitant]
     Indication: CARDIAC DISORDER
  7. LASIX [Concomitant]
     Indication: HYPERTENSION
     Route: 065
  8. SPIRIVA [Concomitant]
     Indication: CARDIAC DISORDER
     Route: 065
  9. ALDACTONE (BRAZIL) [Concomitant]
     Indication: CARDIAC DISORDER
  10. ATROVENT [Concomitant]
     Indication: LUNG DISORDER
  11. VANNAIR [Concomitant]
     Indication: LUNG DISORDER
     Route: 065
  12. CALDE [Concomitant]
     Indication: OSTEOPOROSIS
     Route: 065
  13. SIMVASTATIN [Concomitant]
     Indication: CARDIAC DISORDER
     Route: 065

REACTIONS (8)
  - Thrombosis [Unknown]
  - Pulmonary embolism [Unknown]
  - Nasopharyngitis [Unknown]
  - International normalised ratio increased [Recovering/Resolving]
  - Skin discolouration [Unknown]
  - Lung disorder [Unknown]
  - Drug ineffective [Unknown]
  - Gastrooesophageal reflux disease [Not Recovered/Not Resolved]
